FAERS Safety Report 5841604 (Version 1)
Quarter: 2020Q3

REPORT INFORMATION
  Report Type: Report from Study
  Country: US (occurrence: US)
  Receive Date: 20050721
  Receipt Date: 20050721
  Transmission Date: 20201104
  Serious: Yes (Hospitalization)
  Sender: FDA-Public Use
  Company Number: US-ROCHE-392698

PATIENT
  Age: 68 Year
  Sex: Female
  Weight: 78.2 kg

DRUGS (5)
  1. MULTI?VITAMIN [Concomitant]
     Active Substance: .ALPHA.-TOCOPHEROL ACETATE, DL-\ASCORBIC ACID\CYANOCOBALAMIN\FLUORIDE ION\FOLIC ACID\NIACIN\PYRIDOXINE\RIBOFLAVIN\THIAMINE\VITAMIN A\VITAMIN D
     Dates: start: 20041115
  2. CLONIDINE. [Concomitant]
     Active Substance: CLONIDINE
     Dates: start: 20041115
  3. ATIVAN [Concomitant]
     Active Substance: LORAZEPAM
     Dosage: PRN
     Dates: start: 20041115
  4. VALIUM [Concomitant]
     Active Substance: DIAZEPAM
     Dosage: PRN
     Dates: start: 20050115
  5. EPOTHILONE D [Suspect]
     Active Substance: EPOTHILONE D
     Dosage: GIVEN WEEKLY FOR 3 WEEKS OF A 4 WEEK CYCLE
     Route: 042
     Dates: end: 20050112

REACTIONS (2)
  - Colitis [Recovered/Resolved]
  - Metastases to lung [None]

NARRATIVE: CASE EVENT DATE: 20050112
